FAERS Safety Report 10028232 (Version 2)
Quarter: 2014Q2

REPORT INFORMATION
  Report Type: Not Available
  Country: FR (occurrence: FR)
  Receive Date: 20140321
  Receipt Date: 20140529
  Transmission Date: 20141212
  Serious: Yes (Hospitalization)
  Sender: FDA-Public Use
  Company Number: FR-NAPPMUNDI-GBR-2014-0017497

PATIENT
  Age: 80 Year
  Sex: Female

DRUGS (13)
  1. SOPHIDONE LP 8 MG [Suspect]
     Indication: PRODUCT USED FOR UNKNOWN INDICATION
     Dosage: 8 MG, BID
     Route: 065
     Dates: end: 20140210
  2. ABSTRAL [Suspect]
     Indication: PRODUCT USED FOR UNKNOWN INDICATION
     Dosage: 100 MCG, SINGLE
     Route: 048
     Dates: start: 201402
  3. BROMAZEPAM [Interacting]
     Indication: PRODUCT USED FOR UNKNOWN INDICATION
     Dosage: 3 MG, DAILY
     Route: 065
  4. CLONAZEPAM [Interacting]
     Indication: PRODUCT USED FOR UNKNOWN INDICATION
     Dosage: 8 DROP, NOCTE
     Route: 065
  5. FENTANYL [Interacting]
     Indication: PRODUCT USED FOR UNKNOWN INDICATION
     Dosage: 1 PATCH, Q72H
     Route: 065
  6. MORPHINE [Interacting]
     Indication: PRODUCT USED FOR UNKNOWN INDICATION
     Dosage: 5 MG, Q8H
     Route: 048
  7. ZOLPIDEM [Interacting]
     Indication: PRODUCT USED FOR UNKNOWN INDICATION
     Dosage: 10 MG, DAILY
     Route: 065
  8. AMLODIPINE [Concomitant]
     Dosage: 10 MG, DAILY
  9. CARBAMAZEPINE [Concomitant]
     Dosage: 300 MG, TID
  10. DONEPEZIL [Concomitant]
     Dosage: 10 MG, DAILY
  11. MIANSERINE [Concomitant]
     Dosage: 10 MG, DAILY
  12. PARACETAMOL [Concomitant]
     Dosage: 1 GRAM, TID
  13. PERINDOPRIL [Concomitant]
     Dosage: 2.5 MG, DAILY

REACTIONS (5)
  - Drug interaction [Unknown]
  - Tongue oedema [Recovered/Resolved]
  - Lip oedema [Recovered/Resolved]
  - Pain [Unknown]
  - Dyspnoea [Recovered/Resolved]
